FAERS Safety Report 12574001 (Version 6)
Quarter: 2019Q1

REPORT INFORMATION
  Report Type: Report from Study
  Country: DE (occurrence: DE)
  Receive Date: 20160720
  Receipt Date: 20190304
  Transmission Date: 20190417
  Serious: Yes (Life-Threatening, Hospitalization, Other)
  Sender: FDA-Public Use
  Company Number: DE-BRISTOL-MYERS SQUIBB COMPANY-BMS-2016-058551

PATIENT
  Age: 71 Year
  Sex: Male

DRUGS (19)
  1. BIFITERAL [Concomitant]
     Active Substance: LACTULOSE
     Indication: PRODUCT USED FOR UNKNOWN INDICATION
     Route: 065
  2. SAB SIMPLEX                        /00159501/ [Concomitant]
     Indication: PRODUCT USED FOR UNKNOWN INDICATION
     Route: 065
  3. METHOTREXATE. [Concomitant]
     Active Substance: METHOTREXATE
     Indication: PRODUCT USED FOR UNKNOWN INDICATION
     Dosage: 25 MG, QWK
     Route: 065
     Dates: start: 201604
  4. TAVEGIL                            /00137201/ [Concomitant]
     Active Substance: CLEMASTINE FUMARATE
     Indication: PRODUCT USED FOR UNKNOWN INDICATION
     Route: 065
  5. METHOTREXATE. [Concomitant]
     Active Substance: METHOTREXATE
     Indication: PRODUCT USED FOR UNKNOWN INDICATION
     Dosage: UNK
     Route: 065
     Dates: start: 201607
  6. REMIFENTANIL [Concomitant]
     Active Substance: REMIFENTANIL
     Indication: PRODUCT USED FOR UNKNOWN INDICATION
     Route: 065
  7. PREDNISOLONE. [Concomitant]
     Active Substance: PREDNISOLONE
     Indication: PRODUCT USED FOR UNKNOWN INDICATION
     Route: 065
  8. JONOSTERIL                         /00351401/ [Concomitant]
     Active Substance: CALCIUM ACETATE\MAGNESIUM ACETATE\POTASSIUM ACETATE\SODIUM ACETATE\SODIUM CHLORI
     Indication: PRODUCT USED FOR UNKNOWN INDICATION
     Route: 065
  9. DISOPRIVAN [Concomitant]
     Active Substance: PROPOFOL
     Indication: PRODUCT USED FOR UNKNOWN INDICATION
     Route: 065
  10. TAZOBACTAM [Concomitant]
     Active Substance: TAZOBACTAM
     Indication: PRODUCT USED FOR UNKNOWN INDICATION
     Route: 065
  11. FOLSAN [Concomitant]
     Active Substance: FOLIC ACID
     Indication: PRODUCT USED FOR UNKNOWN INDICATION
     Route: 065
  12. ABATACEPT [Suspect]
     Active Substance: ABATACEPT
     Indication: RHEUMATOID ARTHRITIS
     Dosage: 125 MG, QWK
     Route: 058
     Dates: start: 20160115, end: 20160405
  13. PANTOZOL [Concomitant]
     Active Substance: PANTOPRAZOLE SODIUM
     Indication: PRODUCT USED FOR UNKNOWN INDICATION
     Route: 065
  14. IPRAMOL [Concomitant]
     Active Substance: ALBUTEROL SULFATE\IPRATROPIUM BROMIDE
     Indication: PRODUCT USED FOR UNKNOWN INDICATION
     Route: 065
  15. MIDAZOLAM [Concomitant]
     Active Substance: MIDAZOLAM HYDROCHLORIDE
     Indication: PRODUCT USED FOR UNKNOWN INDICATION
     Route: 065
  16. ACC                                /00082801/ [Concomitant]
     Active Substance: ACETYLCYSTEINE
     Indication: PRODUCT USED FOR UNKNOWN INDICATION
     Route: 065
  17. COTRIMOXAZOLE [Concomitant]
     Active Substance: SULFAMETHOXAZOLE\TRIMETHOPRIM
     Indication: PRODUCT USED FOR UNKNOWN INDICATION
     Route: 065
  18. FRESUBIN                           /07459901/ [Concomitant]
     Active Substance: CARBOHYDRATES\FATTY ACIDS\MINERALS\PROTEIN\VITAMINS
     Indication: PRODUCT USED FOR UNKNOWN INDICATION
     Route: 065
  19. ARTERENOL [Concomitant]
     Active Substance: NOREPINEPHRINE HYDROCHLORIDE, (+/-)-
     Indication: PRODUCT USED FOR UNKNOWN INDICATION
     Route: 065

REACTIONS (4)
  - Delirium [Unknown]
  - Respiratory failure [Unknown]
  - Pneumocystis jirovecii pneumonia [Recovered/Resolved]
  - Pneumonia aspiration [Unknown]

NARRATIVE: CASE EVENT DATE: 20160404
